FAERS Safety Report 12474716 (Version 1)
Quarter: 2016Q2

REPORT INFORMATION
  Report Type: Report from Study
  Country: KR (occurrence: KR)
  Receive Date: 20160617
  Receipt Date: 20160617
  Transmission Date: 20160815
  Serious: Yes (Other)
  Sender: FDA-Public Use
  Company Number: KR-BRISTOL-MYERS SQUIBB COMPANY-BMS-2016-046938

PATIENT
  Sex: Male

DRUGS (35)
  1. CIMETIDINE [Concomitant]
     Active Substance: CIMETIDINE
     Indication: PRODUCT USED FOR UNKNOWN INDICATION
     Dosage: 200 MG, UNK
     Route: 065
     Dates: start: 20140618, end: 20140618
  2. ERTAPENEM [Concomitant]
     Active Substance: ERTAPENEM
     Indication: PRODUCT USED FOR UNKNOWN INDICATION
     Dosage: 1 G, UNK
     Route: 065
     Dates: start: 20140624, end: 20140626
  3. ETHAMBUTOL [Concomitant]
     Active Substance: ETHAMBUTOL HYDROCHLORIDE
     Indication: PRODUCT USED FOR UNKNOWN INDICATION
     Dosage: 800 MG, UNK
     Route: 065
     Dates: start: 20140619, end: 20140622
  4. LACTULOSE. [Concomitant]
     Active Substance: LACTULOSE
     Indication: PRODUCT USED FOR UNKNOWN INDICATION
     Dosage: 15 ML, UNK
     Route: 065
     Dates: start: 20140707, end: 20140714
  5. POTASSIUM CHLORIDE. [Concomitant]
     Active Substance: POTASSIUM CHLORIDE
     Dosage: 1200 MG, UNK
     Route: 065
     Dates: start: 20140627, end: 20140627
  6. AZITHROMYCIN ANHYDROUS. [Concomitant]
     Active Substance: AZITHROMYCIN ANHYDROUS
     Dosage: 500 MG, UNK
     Route: 065
     Dates: start: 20140713
  7. FAMOTIDINE. [Concomitant]
     Active Substance: FAMOTIDINE
     Dosage: 10 MG, UNK
     Route: 065
     Dates: start: 20140623, end: 20140716
  8. CLINDAMYCIN [Concomitant]
     Active Substance: CLINDAMYCIN\CLINDAMYCIN PHOSPHATE
     Indication: PRODUCT USED FOR UNKNOWN INDICATION
     Dosage: 1200 MG, UNK
     Route: 065
     Dates: start: 20140712, end: 20140712
  9. FAMOTIDINE. [Concomitant]
     Active Substance: FAMOTIDINE
     Indication: PRODUCT USED FOR UNKNOWN INDICATION
     Dosage: 10 MG, UNK
     Route: 065
     Dates: start: 20140622, end: 20140622
  10. HYDROCORTISONE. [Concomitant]
     Active Substance: HYDROCORTISONE
     Indication: PRODUCT USED FOR UNKNOWN INDICATION
     Route: 065
  11. MEROPENEM. [Concomitant]
     Active Substance: MEROPENEM
     Indication: PRODUCT USED FOR UNKNOWN INDICATION
     Dosage: 1 G, UNK
     Route: 065
     Dates: start: 20140618, end: 20140618
  12. MEROPENEM. [Concomitant]
     Active Substance: MEROPENEM
     Dosage: 2 G, UNK
     Route: 065
     Dates: start: 20140627, end: 20140627
  13. RIFABUTIN. [Concomitant]
     Active Substance: RIFABUTIN
     Indication: PRODUCT USED FOR UNKNOWN INDICATION
     Dosage: 300 MG, UNK
     Route: 065
     Dates: start: 20140619, end: 20140622
  14. VANCOMYCIN [Concomitant]
     Active Substance: VANCOMYCIN
     Indication: PRODUCT USED FOR UNKNOWN INDICATION
     Dosage: UNK
     Route: 065
     Dates: start: 20140618, end: 20140619
  15. ARIPIPRAZOLE. [Suspect]
     Active Substance: ARIPIPRAZOLE
     Indication: PRODUCT USED FOR UNKNOWN INDICATION
     Dosage: 2 MG, UNK
     Route: 065
     Dates: start: 20140710
  16. CIMETIDINE [Concomitant]
     Active Substance: CIMETIDINE
     Dosage: 600 MG, UNK
     Route: 065
     Dates: start: 20140619, end: 20140620
  17. CLINDAMYCIN [Concomitant]
     Active Substance: CLINDAMYCIN\CLINDAMYCIN PHOSPHATE
     Dosage: 1800 MG, UNK
     Route: 065
     Dates: start: 20140713, end: 20140716
  18. FOLIC ACID. [Concomitant]
     Active Substance: FOLIC ACID
     Indication: PRODUCT USED FOR UNKNOWN INDICATION
     Dosage: 1 MG, UNK
     Route: 065
     Dates: start: 20140713, end: 20140731
  19. GANCICLOVIR. [Concomitant]
     Active Substance: GANCICLOVIR
     Indication: PRODUCT USED FOR UNKNOWN INDICATION
     Dosage: 600 MG, UNK
     Route: 065
     Dates: start: 20140625, end: 20140708
  20. METOCLOPRAMIDE. [Concomitant]
     Active Substance: METOCLOPRAMIDE
     Indication: PRODUCT USED FOR UNKNOWN INDICATION
     Dosage: 5 MG, UNK
     Route: 065
     Dates: start: 20140708, end: 20140708
  21. PALIPERIDONE. [Concomitant]
     Active Substance: PALIPERIDONE
     Indication: PRODUCT USED FOR UNKNOWN INDICATION
     Dosage: 3 MG, UNK
     Route: 065
     Dates: start: 20140701, end: 20140701
  22. POTASSIUM CHLORIDE. [Concomitant]
     Active Substance: POTASSIUM CHLORIDE
     Indication: PRODUCT USED FOR UNKNOWN INDICATION
     Dosage: 600 MG, UNK
     Route: 065
     Dates: start: 20140627, end: 20140627
  23. CEFTRIAXONE. [Concomitant]
     Active Substance: CEFTRIAXONE
     Dosage: 2 G, UNK
     Route: 065
     Dates: start: 20140707, end: 20140715
  24. MEROPENEM. [Concomitant]
     Active Substance: MEROPENEM
     Dosage: 3 G, UNK
     Route: 065
     Dates: start: 20140828, end: 20140828
  25. METHYLPREDNISOLONE. [Concomitant]
     Active Substance: METHYLPREDNISOLONE
     Indication: PRODUCT USED FOR UNKNOWN INDICATION
     Dosage: 62.5 MG, UNK
     Route: 065
     Dates: start: 20140618, end: 20140618
  26. DARUNAVIR [Suspect]
     Active Substance: DARUNAVIR
     Indication: PRODUCT USED FOR UNKNOWN INDICATION
     Dosage: 800 MG, UNK
     Route: 065
     Dates: start: 20140619, end: 20140814
  27. AZITHROMYCIN ANHYDROUS. [Concomitant]
     Active Substance: AZITHROMYCIN ANHYDROUS
     Indication: PRODUCT USED FOR UNKNOWN INDICATION
     Dosage: 500 MG, UNK
     Route: 065
     Dates: start: 20140620, end: 20140628
  28. CEFTRIAXONE. [Concomitant]
     Active Substance: CEFTRIAXONE
     Indication: PRODUCT USED FOR UNKNOWN INDICATION
     Dosage: 2 G, UNK
     Route: 065
     Dates: start: 20140622, end: 20140623
  29. MEGESTROL [Concomitant]
     Active Substance: MEGESTROL
     Indication: PRODUCT USED FOR UNKNOWN INDICATION
     Dosage: 10 ML, UNK
     Route: 065
     Dates: start: 20140707
  30. PREDNISOLONE. [Concomitant]
     Active Substance: PREDNISOLONE
     Indication: PRODUCT USED FOR UNKNOWN INDICATION
     Dosage: 93.7 MG, UNK
     Route: 065
     Dates: start: 20140619, end: 20140619
  31. CALCIUM GLUCONATE. [Concomitant]
     Active Substance: CALCIUM GLUCONATE
     Indication: PRODUCT USED FOR UNKNOWN INDICATION
     Dosage: 20 ML, UNK
     Route: 065
     Dates: start: 20140621, end: 20140622
  32. CIMETIDINE [Concomitant]
     Active Substance: CIMETIDINE
     Dosage: 200 MG, UNK
     Route: 065
     Dates: start: 20140621, end: 20140621
  33. FLUCONAZOLE. [Concomitant]
     Active Substance: FLUCONAZOLE
     Indication: PRODUCT USED FOR UNKNOWN INDICATION
     Dosage: 100 MG, UNK
     Route: 065
     Dates: start: 20140620, end: 20140717
  34. SULFAMETHOXAZOLE AND TRIMETHOPRIM [Concomitant]
     Active Substance: SULFAMETHOXAZOLE\TRIMETHOPRIM
     Indication: PRODUCT USED FOR UNKNOWN INDICATION
     Dosage: 1 TAB, UNK
     Route: 065
     Dates: start: 20140621, end: 20140621
  35. SULFAMETHOXAZOLE AND TRIMETHOPRIM [Concomitant]
     Active Substance: SULFAMETHOXAZOLE\TRIMETHOPRIM
     Dosage: 60 ML, UNK
     Route: 065
     Dates: start: 20140628, end: 20140628

REACTIONS (6)
  - Neutropenia [Recovered/Resolved]
  - Hypophosphataemia [Recovered/Resolved]
  - Depression [Not Recovered/Not Resolved]
  - Adrenal insufficiency [Not Recovered/Not Resolved]
  - Hypokalaemia [Recovered/Resolved]
  - Decreased appetite [Recovered/Resolved]

NARRATIVE: CASE EVENT DATE: 20140620
